FAERS Safety Report 6656869-3 (Version None)
Quarter: 2010Q1

REPORT INFORMATION
  Report Type: 
  Country: None (occurrence: None)
  Receive Date: 20100329
  Receipt Date: 20100329
  Transmission Date: 20100710
  Serious: Yes (Other)
  Sender: FDA-Public Use
  Company Number: None

PATIENT
  Age: 46 Year
  Sex: Female
  Weight: 51.2565 kg

DRUGS (1)
  1. REGLAN [Suspect]
     Indication: COLONOSCOPY
     Dosage: 1 AT 1230 PM, 1 AT 430 PM BID PO
     Route: 048
     Dates: start: 20100324, end: 20100324

REACTIONS (9)
  - AGITATION [None]
  - DIARRHOEA [None]
  - DYSKINESIA [None]
  - FEELING ABNORMAL [None]
  - FEELING JITTERY [None]
  - HOMICIDAL IDEATION [None]
  - MUSCLE TWITCHING [None]
  - PSYCHOMOTOR HYPERACTIVITY [None]
  - SUICIDAL IDEATION [None]
